FAERS Safety Report 19830176 (Version 2)
Quarter: 2021Q4

REPORT INFORMATION
  Report Type: Report from Study
  Country: US (occurrence: US)
  Receive Date: 20210915
  Receipt Date: 20211117
  Transmission Date: 20220303
  Serious: Yes (Hospitalization, Other)
  Sender: FDA-Public Use
  Company Number: US-MTPC-MTDA2021-0022062

PATIENT

DRUGS (2)
  1. EDARAVONE [Suspect]
     Active Substance: EDARAVONE
     Indication: Amyotrophic lateral sclerosis
     Dosage: 60 MILLIGRAM, QD 14 DAYS
     Route: 042
     Dates: start: 20210819
  2. EDARAVONE [Suspect]
     Active Substance: EDARAVONE
     Dosage: 60 MILLIGRAM, QD 10 DAYS EVERY 28 DAYS
     Route: 042
     Dates: start: 20210819

REACTIONS (3)
  - Pulmonary embolism [Unknown]
  - Muscle spasms [Unknown]
  - Vomiting [Unknown]
